FAERS Safety Report 14991511 (Version 1)
Quarter: 2018Q2

REPORT INFORMATION
  Report Type: Spontaneous
  Country: US (occurrence: US)
  Receive Date: 20180608
  Receipt Date: 20180608
  Transmission Date: 20180711
  Serious: Yes (Hospitalization, Other)
  Sender: FDA-Public Use
  Company Number: US-GLAXOSMITHKLINE-US2018100650

PATIENT
  Age: 69 Year
  Sex: Female

DRUGS (8)
  1. SOTALOL. [Concomitant]
     Active Substance: SOTALOL
  2. SPIRIVA [Concomitant]
     Active Substance: TIOTROPIUM BROMIDE MONOHYDRATE
  3. VENTOLIN HFA [Concomitant]
     Active Substance: ALBUTEROL SULFATE
  4. AMLODIPINE [Concomitant]
     Active Substance: AMLODIPINE BESYLATE
  5. ADVAIR DISKUS [Suspect]
     Active Substance: FLUTICASONE PROPIONATE\SALMETEROL XINAFOATE
     Indication: ASTHMA
     Dosage: 1 PUFF(S), BID
     Route: 055
     Dates: start: 2008
  6. ELIQUIS [Concomitant]
     Active Substance: APIXABAN
  7. XOLAIR [Concomitant]
     Active Substance: OMALIZUMAB
  8. MONTELUKAST [Concomitant]
     Active Substance: MONTELUKAST SODIUM

REACTIONS (13)
  - Heart rate irregular [Recovered/Resolved]
  - Secretion discharge [Unknown]
  - Cardiac ablation [Recovered/Resolved]
  - Pleurisy [Recovering/Resolving]
  - Dyspnoea [Recovering/Resolving]
  - Malaise [Unknown]
  - Speech disorder [Unknown]
  - Chest discomfort [Unknown]
  - Pneumonia [Recovering/Resolving]
  - Heart rate increased [Recovering/Resolving]
  - Atrial fibrillation [Not Recovered/Not Resolved]
  - Pain [Unknown]
  - Pneumonitis [Unknown]

NARRATIVE: CASE EVENT DATE: 201710
